FAERS Safety Report 5968064-1 (Version None)
Quarter: 2008Q4

REPORT INFORMATION
  Report Type: 
  Country: None (occurrence: None)
  Receive Date: 20081121
  Receipt Date: 20081028
  Transmission Date: 20090506
  Serious: Yes (Other)
  Sender: FDA-Public Use
  Company Number: 2008S1019501

PATIENT
  Age: 30 Year
  Sex: Male

DRUGS (4)
  1. PAROXETINE HCL [Suspect]
     Indication: DELUSIONAL DISORDER, PERSECUTORY TYPE
  2. PAROXETINE HCL [Suspect]
     Indication: DEPRESSION
  3. SERTINDOLE (SERTINDOLE) [Suspect]
     Indication: DELUSIONAL DISORDER, PERSECUTORY TYPE
     Dosage: 20 MG; ONCE;
  4. SERTINDOLE (SERTINDOLE) [Suspect]
     Indication: DEPRESSION
     Dosage: 20 MG; ONCE;

REACTIONS (3)
  - DRUG INTERACTION [None]
  - DRUG WITHDRAWAL SYNDROME [None]
  - SEROTONIN SYNDROME [None]
